FAERS Safety Report 23378708 (Version 1)
Quarter: 2024Q1

REPORT INFORMATION
  Report Type: Report from Study
  Country: US (occurrence: US)
  Receive Date: 20240108
  Receipt Date: 20240108
  Transmission Date: 20240410
  Serious: No
  Sender: FDA-Public Use
  Company Number: US-BIOVITRUM-2024-US-000029

PATIENT
  Age: 50 Year
  Sex: Female

DRUGS (1)
  1. DOPTELET [Suspect]
     Active Substance: AVATROMBOPAG MALEATE
     Indication: Thrombocytopenia
     Dosage: DAILY
     Route: 048
     Dates: start: 20231206

REACTIONS (4)
  - Peripheral swelling [Unknown]
  - Dizziness [Recovered/Resolved]
  - Weight increased [Unknown]
  - Dry skin [Unknown]
